FAERS Safety Report 23939674 (Version 1)
Quarter: 2024Q2

REPORT INFORMATION
  Report Type: Spontaneous
  Country: US (occurrence: US)
  Receive Date: 20240605
  Receipt Date: 20240605
  Transmission Date: 20240716
  Serious: No
  Sender: FDA-Public Use
  Company Number: US-SA-SAC20240603000785

PATIENT
  Age: 10 Year
  Sex: Male
  Weight: 30.8 kg

DRUGS (1)
  1. DUPIXENT [Suspect]
     Active Substance: DUPILUMAB
     Indication: Eosinophilic oesophagitis
     Dosage: DOSE - 300MG FREQUENCY- EVERY 3 WEEKS
     Route: 058

REACTIONS (1)
  - Off label use [Unknown]
